FAERS Safety Report 8996315 (Version 2)
Quarter: 2013Q2

REPORT INFORMATION
  Report Type: Spontaneous
  Country: GB (occurrence: GB)
  Receive Date: 20130103
  Receipt Date: 20130528
  Transmission Date: 20140414
  Serious: Yes (Hospitalization)
  Sender: FDA-Public Use
  Company Number: GB-009507513-1301GBR000159

PATIENT
  Sex: Male

DRUGS (2)
  1. ZOCOR [Suspect]
     Dosage: 40 MG, UNK
     Route: 048
  2. AMLODIPINE [Concomitant]
     Dosage: 5 MG, UNK

REACTIONS (4)
  - Adverse reaction [Unknown]
  - Urticaria [Unknown]
  - Swelling face [Unknown]
  - Swollen tongue [Unknown]
